FAERS Safety Report 4356389-5 (Version None)
Quarter: 2004Q2

REPORT INFORMATION
  Report Type: 
  Country: None (occurrence: None)
  Receive Date: 20040506
  Receipt Date: 20040423
  Transmission Date: 20050107
  Serious: No
  Sender: FDA-Public Use
  Company Number: DPC-2004-00037

PATIENT

DRUGS (2)
  1. EVOXAC [Suspect]
     Indication: SJOGREN'S SYNDROME
     Dosage: ORAL
     Route: 048
  2. COUMADIN [Concomitant]

REACTIONS (4)
  - COAGULOPATHY [None]
  - DRUG INTERACTION [None]
  - INTERNATIONAL NORMALISED RATIO ABNORMAL [None]
  - PROTHROMBIN TIME ABNORMAL [None]
